FAERS Safety Report 6496623-9 (Version None)
Quarter: 2009Q4

REPORT INFORMATION
  Report Type: 
  Country: None (occurrence: None)
  Receive Date: 20091214
  Receipt Date: 20091204
  Transmission Date: 20100525
  Serious: Yes (Other)
  Sender: FDA-Public Use
  Company Number: US-GENENTECH-290785

PATIENT
  Age: 87 Year
  Sex: Female

DRUGS (6)
  1. LUCENTIS [Suspect]
     Indication: CHOROIDAL NEOVASCULARISATION
     Route: 031
  2. LUCENTIS [Suspect]
     Route: 031
  3. LUCENTIS [Suspect]
     Route: 031
  4. LUCENTIS [Suspect]
     Route: 031
  5. LUCENTIS [Suspect]
     Route: 031
  6. LUCENTIS [Suspect]
     Route: 031

REACTIONS (4)
  - RETINAL HAEMORRHAGE [None]
  - RETINAL PIGMENTATION [None]
  - RETINAL SCAR [None]
  - VISUAL ACUITY REDUCED [None]
